FAERS Safety Report 4347366-9 (Version None)
Quarter: 2004Q2

REPORT INFORMATION
  Report Type: 
  Country: None (occurrence: None)
  Receive Date: 20040414
  Receipt Date: 20040331
  Transmission Date: 20050107
  Serious: Yes (Hospitalization, Other)
  Sender: FDA-Public Use
  Company Number: JP_030801643

PATIENT
  Age: 64 Year
  Sex: Female
  Weight: 51 kg

DRUGS (6)
  1. GEMZAR [Suspect]
     Indication: NON-SMALL CELL LUNG CANCER
     Dosage: 1000 MG/M2/OTHER
     Dates: start: 20021029, end: 20021203
  2. YODEL(SENNA) [Concomitant]
  3. HYPEN(ETODOLAC) [Concomitant]
  4. MAGNESIUM OXIDE [Concomitant]
  5. MUCODYNE (CARBOCISTEINE) [Concomitant]
  6. NITRAZEPAM [Concomitant]

REACTIONS (9)
  - BLOOD LACTATE DEHYDROGENASE INCREASED [None]
  - COUGH [None]
  - DYSPNOEA [None]
  - HYPOXIA [None]
  - INTERSTITIAL LUNG DISEASE [None]
  - NEUTROPHIL COUNT DECREASED [None]
  - PO2 DECREASED [None]
  - PYREXIA [None]
  - WHITE BLOOD CELL COUNT DECREASED [None]
